FAERS Safety Report 11129823 (Version 6)
Quarter: 2015Q3

REPORT INFORMATION
  Report Type: Spontaneous
  Country: AU (occurrence: AU)
  Receive Date: 20150521
  Receipt Date: 20150922
  Transmission Date: 20151125
  Serious: Yes (Hospitalization, Other)
  Sender: FDA-Public Use
  Company Number: AU-CELGENE-AUS-2015050547

PATIENT
  Age: 77 Year
  Sex: Male
  Weight: 93 kg

DRUGS (1)
  1. AZACITIDINE INJECTABLE [Suspect]
     Active Substance: AZACITIDINE
     Indication: MYELODYSPLASTIC SYNDROME
     Route: 058
     Dates: start: 20150318, end: 20150324

REACTIONS (8)
  - Sepsis [Recovered/Resolved]
  - Enterococcal infection [Recovered/Resolved with Sequelae]
  - Leukocytosis [Recovered/Resolved with Sequelae]
  - Sepsis [Recovered/Resolved]
  - Myelodysplastic syndrome [Recovered/Resolved]
  - Hepatic function abnormal [Recovered/Resolved]
  - Drug tolerance [Recovered/Resolved]
  - Hepatic failure [Recovered/Resolved]

NARRATIVE: CASE EVENT DATE: 20150413
